FAERS Safety Report 23714326 (Version 2)
Quarter: 2025Q1

REPORT INFORMATION
  Report Type: Report from Study
  Country: AE (occurrence: AE)
  Receive Date: 20240405
  Receipt Date: 20250225
  Transmission Date: 20250409
  Serious: No
  Sender: ROCHE
  Company Number: AE-ROCHE-3537115

PATIENT
  Age: 23 Year
  Sex: Female

DRUGS (2)
  1. OCREVUS [Suspect]
     Active Substance: OCRELIZUMAB
     Indication: Relapsing multiple sclerosis
     Dosage: RECENT DOSE RECEIVED ON 24/MAY/2023.
     Route: 042
     Dates: start: 20211109
  2. OCREVUS [Suspect]
     Active Substance: OCRELIZUMAB
     Dosage: RECENT DOSE RECEIVED ON 24/MAY/2023.
     Route: 042
     Dates: start: 20211123

REACTIONS (1)
  - Demyelination [Unknown]

NARRATIVE: CASE EVENT DATE: 20240401
